FAERS Safety Report 9156581 (Version 1)
Quarter: 2013Q1

REPORT INFORMATION
  Report Type: Spontaneous
  Country: US (occurrence: None)
  Receive Date: 20130208
  Receipt Date: 20130208
  Transmission Date: 20140127
  Serious: Yes (Other)
  Sender: FDA-Public Use
  Company Number: 2013-000338

PATIENT
  Age: 92 Year
  Sex: Female
  Weight: 61.2 kg

DRUGS (5)
  1. ACTONEL [Suspect]
     Indication: HYPERPARATHYROIDISM
     Route: 048
     Dates: start: 2012
  2. ZITHROMAX [Suspect]
     Indication: PNEUMONIA
     Dosage: 500 MG AS NEEDED.
     Route: 048
     Dates: end: 20130105
  3. ZITHROMAX [Suspect]
     Indication: INFLUENZA
     Dosage: 500 MG AS NEEDED.
     Route: 048
     Dates: end: 20130105
  4. ZITHROMAX [Suspect]
     Dosage: 500 MG AS NEEDED.
     Route: 048
     Dates: end: 20130105
  5. ZITHROMAX [Suspect]
     Dosage: 500 MG AS NEEDED.
     Route: 048
     Dates: end: 20130105

REACTIONS (4)
  - Vascular rupture [None]
  - Blood calcium increased [None]
  - Haemorrhage [None]
  - Product substitution issue [None]
